FAERS Safety Report 23218836 (Version 2)
Quarter: 2024Q1

REPORT INFORMATION
  Report Type: Report from Study
  Country: PT (occurrence: PT)
  Receive Date: 20231122
  Receipt Date: 20240119
  Transmission Date: 20240409
  Serious: Yes (Death, Other)
  Sender: FDA-Public Use
  Company Number: PT-JNJFOC-20231152545

PATIENT

DRUGS (2)
  1. TECVAYLI [Suspect]
     Active Substance: TECLISTAMAB-CQYV
     Indication: Plasma cell myeloma refractory
     Route: 065
  2. TECVAYLI [Suspect]
     Active Substance: TECLISTAMAB-CQYV
     Dosage: 19 OF THE 33 PATIENTS TREATED UNTIL 31-AUG-2023.?81.8% MAKES THE WEEKLY TEC SCHEME
     Route: 065
     Dates: end: 20230831

REACTIONS (15)
  - Infection [Fatal]
  - Immune effector cell-associated neurotoxicity syndrome [Unknown]
  - Cytokine release syndrome [Unknown]
  - Neutropenia [Unknown]
  - Thrombocytopenia [Unknown]
  - Hypogammaglobulinaemia [Unknown]
  - Bacteraemia [Unknown]
  - Anaemia [Unknown]
  - Fatigue [Unknown]
  - COVID-19 [Unknown]
  - Respiratory tract infection [Unknown]
  - Gastroenteritis [Unknown]
  - Cellulitis [Unknown]
  - Atrial fibrillation [Unknown]
  - Plasma cell myeloma [Unknown]
